FAERS Safety Report 4400874-4 (Version None)
Quarter: 2004Q3

REPORT INFORMATION
  Report Type: 
  Country: None (occurrence: None)
  Receive Date: 20040907
  Receipt Date: 20030715
  Transmission Date: 20050211
  Serious: No
  Sender: FDA-Public Use
  Company Number: US-BRISTOL-MYERS SQUIBB COMPANY-12327706

PATIENT
  Age: 79 Year
  Sex: Female

DRUGS (2)
  1. COUMADIN [Suspect]
     Indication: HEART DISEASE CONGENITAL
     Route: 048
     Dates: start: 20030712, end: 20030715
  2. RYTMONORM [Concomitant]
     Dates: start: 20030601, end: 20030715

REACTIONS (2)
  - OEDEMA [None]
  - RASH ERYTHEMATOUS [None]
